FAERS Safety Report 9058069 (Version 1)
Quarter: 2013Q1

REPORT INFORMATION
  Report Type: Spontaneous
  Country: US (occurrence: None)
  Receive Date: 20130204
  Receipt Date: 20130204
  Transmission Date: 20140127
  Serious: Yes (Life-Threatening, Hospitalization)
  Sender: FDA-Public Use
  Company Number: None

PATIENT
  Age: 78 Year
  Sex: Female
  Weight: 98.88 kg

DRUGS (2)
  1. TAMOXIFEN CITRATE [Suspect]
     Indication: RECURRENT CANCER
     Route: 048
     Dates: start: 2009, end: 2012
  2. TAMOXIFEN CITRATE [Suspect]
     Indication: PROPHYLAXIS
     Route: 048
     Dates: start: 2009, end: 2012

REACTIONS (2)
  - Pulmonary thrombosis [None]
  - Dyspnoea [None]
